FAERS Safety Report 24877955 (Version 1)
Quarter: 2025Q1

REPORT INFORMATION
  Report Type: Spontaneous
  Country: US (occurrence: None)
  Receive Date: 20250122
  Receipt Date: 20250122
  Transmission Date: 20250408
  Serious: Yes (Death)
  Sender: FDA-CTU
  Company Number: None

PATIENT
  Age: 70 Year
  Sex: Female

DRUGS (11)
  1. REPATHA [Suspect]
     Active Substance: EVOLOCUMAB
     Indication: Hyperlipidaemia
     Route: 030
  2. AMBEIN [Concomitant]
  3. ELIQUIS [Concomitant]
     Active Substance: APIXABAN
  4. SINGULAIR [Concomitant]
     Active Substance: MONTELUKAST SODIUM
  5. ENVARSUS XR [Concomitant]
     Active Substance: TACROLIMUS
  6. MYFORTIC [Concomitant]
     Active Substance: MYCOPHENOLATE SODIUM
  7. AMLODIPINE [Concomitant]
     Active Substance: AMLODIPINE BESYLATE
  8. LEVOTHYROXINE [Concomitant]
     Active Substance: LEVOTHYROXINE
  9. METOPROLOL [Concomitant]
     Active Substance: METOPROLOL
  10. RESTASIS [Concomitant]
     Active Substance: CYCLOSPORINE
  11. LACTULOSE [Concomitant]
     Active Substance: LACTULOSE

REACTIONS (1)
  - Death [None]

NARRATIVE: CASE EVENT DATE: 20241229
